FAERS Safety Report 15028340 (Version 1)
Quarter: 2018Q2

REPORT INFORMATION
  Report Type: Spontaneous
  Country: US (occurrence: US)
  Receive Date: 20180619
  Receipt Date: 20180619
  Transmission Date: 20180711
  Serious: Yes (Other)
  Sender: FDA-Public Use
  Company Number: US-PFIZER INC-2018076484

PATIENT
  Age: 73 Year
  Sex: Female
  Weight: 88.44 kg

DRUGS (5)
  1. METHOTREXATE. [Concomitant]
     Active Substance: METHOTREXATE
     Indication: ARTHRITIS
     Dosage: UNK UNK, WEEKLY(ONCE A WEEK)
  2. IBRANCE [Suspect]
     Active Substance: PALBOCICLIB
     Dosage: UNK [ONE DAY PAST THE 21 DAYS, ON DAY 22, RATHER THAN STOPPING ON DAY 21]
  3. LETROZOLE. [Concomitant]
     Active Substance: LETROZOLE
     Indication: BREAST CANCER
     Dosage: UNK
  4. IBRANCE [Suspect]
     Active Substance: PALBOCICLIB
     Dosage: 100 MG, UNK
  5. IBRANCE [Suspect]
     Active Substance: PALBOCICLIB
     Indication: BREAST CANCER
     Dosage: 125 MG, CYCLIC (DAILY FOR 21 DAYS AND THEN 7 DAYS OFF)
     Route: 048

REACTIONS (6)
  - Fatigue [Recovered/Resolved]
  - Alopecia [Recovered/Resolved]
  - Stomatitis [Recovered/Resolved]
  - Pneumonia viral [Unknown]
  - Insomnia [Recovering/Resolving]
  - Inappropriate schedule of drug administration [Unknown]

NARRATIVE: CASE EVENT DATE: 2018
